FAERS Safety Report 8443560-6 (Version None)
Quarter: 2012Q2

REPORT INFORMATION
  Report Type: 
  Country: None (occurrence: None)
  Receive Date: 20120618
  Receipt Date: 20120612
  Transmission Date: 20120825
  Serious: No
  Sender: FDA-Public Use
  Company Number: US-PFIZER INC-2012142073

PATIENT
  Sex: Female
  Weight: 63.492 kg

DRUGS (6)
  1. LYRICA [Suspect]
     Dosage: 100 MG, 3X/DAY
  2. EPITOL [Suspect]
     Indication: NERVE INJURY
     Dosage: UNK
     Dates: start: 20110701, end: 20110101
  3. LYRICA [Suspect]
     Indication: NERVE INJURY
     Dosage: 50 MG, DAILY
     Dates: start: 20110101
  4. PROPRANOLOL HCL [Suspect]
     Indication: FAMILIAL TREMOR
     Dosage: 80 MG, DAILY
  5. PRIMIDONE [Suspect]
     Indication: FAMILIAL TREMOR
  6. PRIMIDONE [Suspect]
     Indication: NERVE INJURY
     Dosage: UNK
     Dates: start: 20080101

REACTIONS (10)
  - MASTICATION DISORDER [None]
  - DRUG INEFFECTIVE [None]
  - SPEECH DISORDER [None]
  - DIZZINESS [None]
  - RASH GENERALISED [None]
  - FACIAL PAIN [None]
  - HEART RATE INCREASED [None]
  - FACIAL NEURALGIA [None]
  - PALPITATIONS [None]
  - BALANCE DISORDER [None]
